FAERS Safety Report 4806537-5 (Version None)
Quarter: 2005Q4

REPORT INFORMATION
  Report Type: 
  Country: None (occurrence: None)
  Receive Date: 20051019
  Receipt Date: 20051003
  Transmission Date: 20060501
  Serious: Yes (Other)
  Sender: FDA-Public Use
  Company Number: 6017947

PATIENT
  Age: 25 Year
  Sex: Female

DRUGS (3)
  1. SCHERITONIN [Suspect]
     Indication: ACNE
     Dosage: 10,000 MG (10 MG, 1 IN 1 D) ORAL
     Route: 048
     Dates: start: 20050301, end: 20050901
  2. DIANE 35 (TABLET) [Concomitant]
  3. ETHINYLESTRADIOL + DROSPIRENONE [Concomitant]

REACTIONS (4)
  - DRUG EXPOSURE DURING PREGNANCY [None]
  - METRORRHAGIA [None]
  - PREGNANCY [None]
  - TREATMENT NONCOMPLIANCE [None]
